FAERS Safety Report 8814855 (Version 2)
Quarter: 2012Q4

REPORT INFORMATION
  Report Type: 
  Country: FR (occurrence: FR)
  Receive Date: 20120928
  Receipt Date: 20121015
  Transmission Date: 20130627
  Serious: Yes (Hospitalization)
  Sender: FDA-Public Use
  Company Number: FR-009507513-1209FRA008277

PATIENT
  Sex: Female

DRUGS (23)
  1. HUMEGON [Suspect]
     Indication: IN VITRO FERTILISATION
     Dosage: UNK
     Route: 030
     Dates: start: 1996, end: 1996
  2. DECAPEPTYL (TRIPTORELIN ACETATE) [Suspect]
     Indication: IN VITRO FERTILISATION
     Dosage: UNK
     Route: 030
     Dates: start: 1993
  3. DECAPEPTYL (TRIPTORELIN ACETATE) [Suspect]
     Dosage: UNK
     Route: 030
     Dates: start: 1994
  4. DECAPEPTYL (TRIPTORELIN ACETATE) [Suspect]
     Dosage: UNK
     Route: 030
     Dates: start: 1996
  5. DECAPEPTYL (TRIPTORELIN ACETATE) [Suspect]
     Dosage: UNK
     Route: 030
     Dates: start: 1998
  6. ENANTONE [Suspect]
     Indication: ENDOMETRIOSIS
     Dosage: UNK
     Route: 030
     Dates: end: 2002
  7. ENANTONE [Suspect]
     Dosage: UNK
  8. METRODINE [Suspect]
     Indication: IN VITRO FERTILISATION
     Dosage: UNK
     Route: 030
     Dates: start: 1994
  9. METRODINE [Suspect]
     Dosage: UNK
     Route: 030
     Dates: start: 1995
  10. METRODINE [Suspect]
     Dosage: UNK
     Route: 030
     Dates: start: 1996
  11. METRODINE [Suspect]
     Dosage: UNK
  12. NEO PERGONAL [Suspect]
     Indication: IN VITRO FERTILISATION
     Dosage: UNK
     Dates: start: 1994, end: 1995
  13. GONAL-F [Suspect]
     Indication: IN VITRO FERTILISATION
     Dosage: UNK
     Route: 058
     Dates: start: 1997, end: 1998
  14. GONAL-F [Suspect]
     Dosage: UNK
     Route: 058
     Dates: start: 1998
  15. GONAL-F [Suspect]
     Dosage: UNK
     Dates: start: 2002
  16. SURGESTONE [Suspect]
     Indication: IN VITRO FERTILISATION
     Dosage: UNK
     Route: 048
     Dates: start: 1994
  17. SURGESTONE [Suspect]
     Dosage: UNK
     Dates: start: 1995
  18. SURGESTONE [Suspect]
     Dosage: UNK
     Dates: start: 1996
  19. SURGESTONE [Suspect]
     Dosage: UNK
     Dates: start: 1997
  20. UTROGESTAN [Suspect]
     Indication: IN VITRO FERTILISATION
     Dosage: UNK
     Route: 048
     Dates: start: 1995
  21. UTROGESTAN [Suspect]
     Indication: ENDOMETRIOSIS
     Dosage: UNK
     Dates: start: 1996
  22. UTROGESTAN [Suspect]
     Dosage: UNK
     Dates: start: 1997
  23. UTROGESTAN [Suspect]
     Dosage: UNK
     Dates: start: 1998

REACTIONS (1)
  - Breast cancer [Not Recovered/Not Resolved]
